FAERS Safety Report 20460197 (Version 1)
Quarter: 2022Q1

REPORT INFORMATION
  Report Type: Spontaneous
  Country: US (occurrence: US)
  Receive Date: 20220211
  Receipt Date: 20220211
  Transmission Date: 20220423
  Serious: Yes (Hospitalization, Other)
  Sender: FDA-Public Use
  Company Number: US-MACLEODS PHARMACEUTICALS US LTD-MAC2021032982

PATIENT

DRUGS (2)
  1. TRIAMCINOLONE [Suspect]
     Active Substance: TRIAMCINOLONE
     Indication: Keloid scar
     Dosage: 0.5 MILLILITER (40 MG/ML, SINGLE(0.5 AND 0.7 ML OF FOR A TOTAL OF 2 INJECTIONS), TWO MONTHS BETWEEN
     Route: 026
  2. TRIAMCINOLONE [Suspect]
     Active Substance: TRIAMCINOLONE
     Dosage: 0.7 MILLILITER (40 MG/ML, SINGLE(0.5 AND 0.7 ML OF FOR A TOTAL OF 2 INJECTIONS), TWO MONTHS BETWEEN
     Route: 026

REACTIONS (8)
  - Hyperaesthesia [Recovered/Resolved]
  - Injection site haemorrhage [Recovered/Resolved]
  - Lipoatrophy [Recovered/Resolved]
  - Papule [Recovered/Resolved]
  - Telangiectasia [Recovered/Resolved]
  - Skin fragility [Recovered/Resolved]
  - Skin hypopigmentation [Recovered/Resolved]
  - Skin atrophy [Recovered/Resolved]
